FAERS Safety Report 7462918-5 (Version None)
Quarter: 2011Q2

REPORT INFORMATION
  Report Type: 
  Country: None (occurrence: None)
  Receive Date: 20110506
  Receipt Date: 20110502
  Transmission Date: 20111010
  Serious: Yes (Hospitalization)
  Sender: FDA-Public Use
  Company Number: CH-SANOFI-AVENTIS-2011SA027061

PATIENT
  Age: 70 Year
  Sex: Male

DRUGS (7)
  1. SPIRICORT [Concomitant]
  2. CYMBALTA [Concomitant]
  3. FORTECORTIN [Concomitant]
  4. JEVTANA KIT [Suspect]
     Indication: PROSTATE CANCER
     Dates: start: 20110323, end: 20110323
  5. MST [Concomitant]
     Indication: PAIN
  6. GRANISETRON HCL [Concomitant]
     Indication: NAUSEA
  7. ZYPREXA [Concomitant]

REACTIONS (1)
  - CONVULSION [None]
